FAERS Safety Report 7780613-X (Version None)
Quarter: 2011Q3

REPORT INFORMATION
  Report Type: 
  Country: None (occurrence: None)
  Receive Date: 20110927
  Receipt Date: 20100927
  Transmission Date: 20111222
  Serious: No
  Sender: FDA-Public Use
  Company Number: US-BRISTOL-MYERS SQUIBB COMPANY-15305626

PATIENT
  Age: 85 Year
  Sex: Female

DRUGS (5)
  1. COMBIVENT [Concomitant]
  2. HYDROCHLOROTHIAZIDE [Concomitant]
  3. OMEPRAZOLE [Concomitant]
  4. ASPIRIN [Concomitant]
  5. AVAPRO [Suspect]
     Dosage: 1 DF= HALF OF 300 MG

REACTIONS (2)
  - BLOOD PRESSURE DECREASED [None]
  - HEART RATE DECREASED [None]
